FAERS Safety Report 5711343-3 (Version None)
Quarter: 2008Q2

REPORT INFORMATION
  Report Type: 
  Country: None (occurrence: None)
  Receive Date: 20080421
  Receipt Date: 20080411
  Transmission Date: 20081010
  Serious: Yes (Hospitalization)
  Sender: FDA-Public Use
  Company Number: A0723730A

PATIENT
  Age: 76 Year
  Sex: Male

DRUGS (4)
  1. COREG [Suspect]
     Route: 048
     Dates: start: 20070101, end: 20070101
  2. ACTOS [Suspect]
     Dosage: 45MG PER DAY
     Route: 048
  3. COUMADIN [Suspect]
     Indication: ANTICOAGULANT THERAPY
     Dosage: 6MG PER DAY
     Route: 048
  4. OMEGA 3 FISH OIL [Suspect]
     Indication: HIGH DENSITY LIPOPROTEIN
     Dosage: 1000MG PER DAY
     Route: 048
     Dates: start: 20080318

REACTIONS (3)
  - APPENDICITIS [None]
  - COAGULATION TIME PROLONGED [None]
  - DRUG INTERACTION [None]
